FAERS Safety Report 24977882 (Version 2)
Quarter: 2025Q1

REPORT INFORMATION
  Report Type: Spontaneous
  Country: US (occurrence: US)
  Receive Date: 20250217
  Receipt Date: 20250224
  Transmission Date: 20250408
  Serious: No
  Sender: MERCK SHARP & DOHME LLC
  Company Number: US-PFIZER INC-202400264216

PATIENT
  Age: 43 Year
  Sex: Female

DRUGS (2)
  1. TUCATINIB [Suspect]
     Active Substance: TUCATINIB
     Dosage: 150 MG, TWO TABS IN THE MORNING AND AT BEDTIME, STRENGTH: 150 MILLIGRAM
     Route: 048
     Dates: end: 20250213
  2. CAPECITABINE [Suspect]
     Active Substance: CAPECITABINE

REACTIONS (3)
  - Neoplasm progression [Recovering/Resolving]
  - Off label use [Unknown]
  - Product use issue [Unknown]
